FAERS Safety Report 7149131-6 (Version None)
Quarter: 2010Q4

REPORT INFORMATION
  Report Type: 
  Country: None (occurrence: None)
  Receive Date: 20101209
  Receipt Date: 20101130
  Transmission Date: 20110411
  Serious: Yes (Hospitalization)
  Sender: FDA-Public Use
  Company Number: BR-ASTRAZENECA-2010SE57239

PATIENT
  Age: 70 Year
  Sex: Female
  Weight: 94 kg

DRUGS (6)
  1. ATACAND [Suspect]
     Indication: HYPERTENSION
     Route: 048
     Dates: start: 20080101, end: 20101101
  2. OMEPRAZOLE [Suspect]
     Indication: ULCER
     Route: 048
     Dates: start: 20060101, end: 20101101
  3. OMEPRAZOLE [Suspect]
     Indication: GASTRITIS
     Route: 048
     Dates: start: 20060101, end: 20101101
  4. OMEPRAZOLE [Suspect]
     Route: 048
     Dates: start: 20101101
  5. OMEPRAZOLE [Suspect]
     Route: 048
     Dates: start: 20101101
  6. DIUBLOK [Concomitant]
     Indication: HYPERTENSION
     Route: 048
     Dates: start: 20080101

REACTIONS (6)
  - BLOOD PRESSURE INCREASED [None]
  - CHOLELITHIASIS [None]
  - DRUG INEFFECTIVE [None]
  - GASTRITIS [None]
  - HYPERTENSION [None]
  - ULCER [None]
